FAERS Safety Report 16871751 (Version 1)
Quarter: 2019Q3

REPORT INFORMATION
  Report Type: Spontaneous
  Country: US (occurrence: US)
  Receive Date: 20190807
  Receipt Date: 20190807
  Transmission Date: 20191007
  Serious: Yes (Other)
  Sender: FDA-Public Use
  Company Number: None

PATIENT
  Age: 72 Year
  Sex: Female
  Weight: 93 kg

DRUGS (1)
  1. ROSUVASTATIN. [Suspect]
     Active Substance: ROSUVASTATIN
     Indication: HYPERLIPIDAEMIA
     Dosage: ?          OTHER DOSE:0.5 TAB;?
     Route: 048
     Dates: start: 20190417, end: 20190620

REACTIONS (4)
  - Fall [None]
  - Dizziness [None]
  - Rib fracture [None]
  - Rotator cuff syndrome [None]

NARRATIVE: CASE EVENT DATE: 20190620
